FAERS Safety Report 12528130 (Version 1)
Quarter: 2016Q3

REPORT INFORMATION
  Report Type: Spontaneous
  Country: CH (occurrence: CH)
  Receive Date: 20160705
  Receipt Date: 20160705
  Transmission Date: 20161109
  Serious: Yes (Disabling)
  Sender: FDA-Public Use
  Company Number: CH-PFIZER INC-2016322241

PATIENT
  Age: 59 Year
  Sex: Male

DRUGS (8)
  1. INSPRA [Suspect]
     Active Substance: EPLERENONE
     Dosage: UNK
  2. ESOMEP /01479301/ [Suspect]
     Active Substance: ESOMEPRAZOLE
     Dosage: UNK
  3. ISOPTIN [Suspect]
     Active Substance: VERAPAMIL HYDROCHLORIDE
     Indication: CARDIAC DISORDER
     Dosage: UNK
  4. TRACLEER [Suspect]
     Active Substance: BOSENTAN
  5. BYSTOLIC [Suspect]
     Active Substance: NEBIVOLOL HYDROCHLORIDE
     Dosage: UNK
  6. TOREM /01036501/ [Suspect]
     Active Substance: TORSEMIDE
     Dosage: UNK
  7. OPSUMIT [Suspect]
     Active Substance: MACITENTAN
     Dosage: UNK
  8. ALDACTONE [Suspect]
     Active Substance: SPIRONOLACTONE
     Dosage: UNK

REACTIONS (2)
  - Drug ineffective [Unknown]
  - Gynaecomastia [Not Recovered/Not Resolved]

NARRATIVE: CASE EVENT DATE: 201407
